FAERS Safety Report 10100964 (Version 1)
Quarter: 2014Q2

REPORT INFORMATION
  Report Type: Spontaneous
  Country: US (occurrence: US)
  Receive Date: 20140424
  Receipt Date: 20140424
  Transmission Date: 20141212
  Serious: Yes (Other)
  Sender: FDA-Public Use
  Company Number: US-AMGEN INC.-USASP2014029228

PATIENT
  Age: 68 Year
  Sex: Female

DRUGS (14)
  1. ENBREL [Suspect]
     Indication: PRODUCT USED FOR UNKNOWN INDICATION
     Dosage: 50 MG, QWK
     Route: 058
  2. PEPCID                             /00706001/ [Concomitant]
     Dosage: 20 MG, UNK
  3. DETROL LA [Concomitant]
     Dosage: 4 MG, UNK
  4. PROMETRIUM                         /00110701/ [Concomitant]
     Dosage: 200 MG, UNK
  5. ULTRAM                             /00599202/ [Concomitant]
     Dosage: 50 MG, UNK
  6. PREMARIN [Concomitant]
     Dosage: 0.9 MG, UNK
  7. PREDNISONE [Concomitant]
     Dosage: 20 MG, UNK
  8. METHOTREXATE [Concomitant]
     Dosage: 2.5 MG, UNK
  9. VICODIN [Concomitant]
     Dosage: 5-500MG
  10. RECLAST [Concomitant]
     Dosage: 5/100 ML
  11. ONDANSETRON [Concomitant]
     Dosage: 24 MG, UNK
  12. ASPIRIN [Concomitant]
     Dosage: 325 MG, UNK
  13. CALCIUM + VITAMIN D                /01483701/ [Concomitant]
     Dosage: UNK
  14. TRANXENE T-TAB [Concomitant]
     Dosage: 7.5 MG, UNK

REACTIONS (4)
  - Bursitis infective [Unknown]
  - Abscess limb [Unknown]
  - Oropharyngeal pain [Unknown]
  - Nasopharyngitis [Unknown]
